FAERS Safety Report 4943150-3 (Version None)
Quarter: 2006Q1

REPORT INFORMATION
  Report Type: 
  Country: None (occurrence: None)
  Receive Date: 20060314
  Receipt Date: 20060208
  Transmission Date: 20060701
  Serious: Yes (Hospitalization)
  Sender: FDA-Public Use
  Company Number: US-MERCK-0602USA02298

PATIENT
  Age: 58 Year
  Sex: Male
  Weight: 116 kg

DRUGS (4)
  1. VIOXX [Suspect]
     Indication: PAIN IN EXTREMITY
     Route: 048
     Dates: start: 20000101, end: 20040930
  2. AMARYL [Concomitant]
     Route: 065
  3. AVANDIA [Concomitant]
     Route: 065
  4. CAPOTEN [Concomitant]
     Route: 065

REACTIONS (3)
  - DIABETES MELLITUS [None]
  - HYPERTENSION [None]
  - THROMBOEMBOLIC STROKE [None]
